FAERS Safety Report 4970464-3 (Version None)
Quarter: 2006Q1

REPORT INFORMATION
  Report Type: 
  Country: None (occurrence: None)
  Receive Date: 20060127
  Receipt Date: 20051026
  Transmission Date: 20060701
  Serious: No
  Sender: FDA-Public Use
  Company Number: 012007

PATIENT
  Age: 45 Year
  Sex: Female

DRUGS (20)
  1. PRIALT [Suspect]
     Indication: PAIN
     Dosage: UG, ONCE/HOUR, INTRATHECAL  ; 0.6 UG, ONCE/HOUR, INTRATHECAL
     Route: 037
     Dates: start: 20050622, end: 20050921
  2. PRIALT [Suspect]
     Indication: PAIN
     Dosage: UG, ONCE/HOUR, INTRATHECAL  ; 0.6 UG, ONCE/HOUR, INTRATHECAL
     Route: 037
     Dates: start: 20050921, end: 20051004
  3. SKELAXIN [Concomitant]
  4. KLONOPIN [Concomitant]
  5. ACTIQ [Concomitant]
  6. DILAUDID [Concomitant]
  7. CYMBALTA [Concomitant]
  8. DUROGESIC (FENTANYL) [Concomitant]
  9. CLONIDINE [Concomitant]
  10. RESTORIL [Concomitant]
  11. LIDODERM [Concomitant]
  12. MELATONIN [Concomitant]
  13. ZYFLAMMED SUPPLEMENTS [Concomitant]
  14. OXYCODONE [Concomitant]
  15. BACLOFEN [Concomitant]
  16. DIAZEPAM [Concomitant]
  17. FENTANYL [Concomitant]
  18. MORPHINE [Concomitant]
  19. BUPIVACAINE [Concomitant]
  20. KETEK [Concomitant]

REACTIONS (23)
  - ABDOMINAL DISTENSION [None]
  - ABDOMINAL PAIN UPPER [None]
  - AGITATION [None]
  - ANXIETY [None]
  - DECREASED APPETITE [None]
  - DIARRHOEA [None]
  - DISTURBANCE IN ATTENTION [None]
  - DIZZINESS [None]
  - FAECAL INCONTINENCE [None]
  - FATIGUE [None]
  - HEADACHE [None]
  - HERPES SIMPLEX [None]
  - HYPERHIDROSIS [None]
  - MUSCLE SPASMS [None]
  - NAUSEA [None]
  - OEDEMA PERIPHERAL [None]
  - PAIN [None]
  - PAIN IN EXTREMITY [None]
  - PALPITATIONS [None]
  - PYREXIA [None]
  - SINUSITIS [None]
  - SWELLING FACE [None]
  - URINARY HESITATION [None]
